FAERS Safety Report 23307896 (Version 1)
Quarter: 2023Q4

REPORT INFORMATION
  Report Type: Spontaneous
  Country: US (occurrence: US)
  Receive Date: 20231218
  Receipt Date: 20231218
  Transmission Date: 20240110
  Serious: Yes (Other)
  Sender: FDA-Public Use
  Company Number: US-PFIZER INC-PV202300202032

PATIENT
  Age: 66 Year
  Sex: Female
  Weight: 99.501 kg

DRUGS (4)
  1. IBRANCE [Suspect]
     Active Substance: PALBOCICLIB
     Indication: Neoplasm malignant
     Dosage: UNK
     Dates: start: 20201001
  2. IBRANCE [Suspect]
     Active Substance: PALBOCICLIB
     Indication: Breast cancer female
     Dosage: 100 MG
     Dates: start: 202303
  3. IBRANCE [Suspect]
     Active Substance: PALBOCICLIB
     Dosage: 1 PO EVERY DAY ON DAYS 1-21 OF 28 DAY CYCLE
     Route: 048
  4. LETROZOLE [Suspect]
     Active Substance: LETROZOLE
     Dosage: UNK
     Dates: start: 202010

REACTIONS (3)
  - Cytopenia [Unknown]
  - Neoplasm progression [Unknown]
  - Weight increased [Unknown]
